FAERS Safety Report 9376923 (Version 1)
Quarter: 2013Q3

REPORT INFORMATION
  Report Type: Report from Study
  Country: BR (occurrence: BR)
  Receive Date: 20130701
  Receipt Date: 20130701
  Transmission Date: 20140515
  Serious: Yes (Hospitalization, Other)
  Sender: FDA-Public Use
  Company Number: PHHY2013BR066843

PATIENT
  Age: 58 Year
  Sex: Female

DRUGS (3)
  1. DIOVAN TRIPLE [Suspect]
     Indication: HYPERTENSION
     Dosage: 160/5/12.5 MG, QD
     Dates: start: 20130610, end: 20130624
  2. PANTOPRAZOLE [Concomitant]
     Dosage: UNK UKN, UNK
  3. ENALAPRIL [Concomitant]
     Indication: HYPERTENSION
     Dosage: 20 MG OR 10MG

REACTIONS (4)
  - Nervousness [Recovering/Resolving]
  - Blood pressure abnormal [Recovering/Resolving]
  - Chest pain [Recovering/Resolving]
  - Swelling [Recovering/Resolving]
